FAERS Safety Report 24330082 (Version 1)
Quarter: 2024Q3

REPORT INFORMATION
  Report Type: Report from Study
  Country: GR (occurrence: GR)
  Receive Date: 20240917
  Receipt Date: 20240917
  Transmission Date: 20241017
  Serious: Yes (Other)
  Sender: ABBVIE
  Company Number: GR-ABBVIE-5908249

PATIENT
  Age: 81 Year
  Sex: Male
  Weight: 75 kg

DRUGS (5)
  1. CARBIDOPA\LEVODOPA [Suspect]
     Active Substance: CARBIDOPA\LEVODOPA
     Indication: Parkinson^s disease
     Dosage: MORNING DOSE: 11.0ML; CONTINUOUS RATE: 2.7ML/H; EXTRA DOSE: 1.2ML
     Route: 050
     Dates: start: 20200224
  2. CARBIDOPA\LEVODOPA [Suspect]
     Active Substance: CARBIDOPA\LEVODOPA
     Dosage: MORNING DOSE: 11.0ML; CONTINUOUS RATE: 2.7ML/H; EXTRA DOSE: 1.2ML
     Route: 050
  3. ASARKIN [Concomitant]
     Indication: Product used for unknown indication
     Route: 048
  4. Seropram [Concomitant]
     Indication: Product used for unknown indication
     Route: 048
  5. NEUPRO [Concomitant]
     Active Substance: ROTIGOTINE
     Indication: Product used for unknown indication
     Route: 062

REACTIONS (5)
  - Embedded device [Recovered/Resolved]
  - Dysphagia [Not Recovered/Not Resolved]
  - Stoma site reaction [Unknown]
  - Device use error [Unknown]
  - Stoma site haemorrhage [Recovered/Resolved]

NARRATIVE: CASE EVENT DATE: 20240904
